FAERS Safety Report 6051415-X (Version None)
Quarter: 2009Q1

REPORT INFORMATION
  Report Type: 
  Country: None (occurrence: None)
  Receive Date: 20090126
  Receipt Date: 20090116
  Transmission Date: 20090719
  Serious: Yes (Hospitalization)
  Sender: FDA-Public Use
  Company Number: FR-JNJFOC-20090103894

PATIENT
  Sex: Female

DRUGS (3)
  1. REMICADE [Suspect]
     Indication: COLITIS ULCERATIVE
     Route: 042
  2. IMUREL [Concomitant]
     Indication: COLITIS ULCERATIVE
  3. CORTICOIDS [Concomitant]
     Indication: COLITIS ULCERATIVE

REACTIONS (1)
  - PHLEBITIS [None]
